FAERS Safety Report 26065465 (Version 1)
Quarter: 2025Q4

REPORT INFORMATION
  Report Type: Spontaneous
  Country: CA (occurrence: CA)
  Receive Date: 20251119
  Receipt Date: 20251119
  Transmission Date: 20260118
  Serious: Yes (Hospitalization, Other)
  Sender: Haleon PLC
  Company Number: CA-HALEON-2274574

PATIENT
  Age: 26 Year
  Sex: Female
  Weight: 125 kg

DRUGS (2)
  1. NICOTINE [Interacting]
     Active Substance: NICOTINE
     Indication: Product used for unknown indication
  2. CLOZAPINE [Interacting]
     Active Substance: CLOZAPINE
     Indication: Product used for unknown indication

REACTIONS (8)
  - Suicidal ideation [Recovered/Resolved]
  - Hallucination, auditory [Recovered/Resolved]
  - Tachycardia [Recovered/Resolved]
  - Feeling guilty [Recovered/Resolved]
  - Tobacco poisoning [Recovered/Resolved]
  - Labelled drug-drug interaction issue [Recovered/Resolved]
  - Hypertension [Recovered/Resolved]
  - Tremor [Recovered/Resolved]
